FAERS Safety Report 5663475-6 (Version None)
Quarter: 2008Q1

REPORT INFORMATION
  Report Type: 
  Country: None (occurrence: None)
  Receive Date: 20080310
  Receipt Date: 20080225
  Transmission Date: 20080703
  Serious: Yes (Other)
  Sender: FDA-Public Use
  Company Number: 2008S1003140

PATIENT
  Age: 51 Year
  Sex: Male

DRUGS (4)
  1. ATENOLOL [Suspect]
     Indication: DRUG USE FOR UNKNOWN INDICATION
     Dosage: 50 MG; ORAL
  2. NIFEDIPINE [Suspect]
     Indication: DRUG USE FOR UNKNOWN INDICATION
     Dosage: 30 MG; ORAL
     Route: 048
  3. BENDROFLUMETHIAZIDE (BENDROFLUMETHIAZIDE) (CON.) [Concomitant]
  4. LISINOPRIL (LISINOPRIL) (CON.) [Concomitant]

REACTIONS (1)
  - BACK PAIN [None]
